FAERS Safety Report 9970424 (Version 2)
Quarter: 2014Q1

REPORT INFORMATION
  Report Type: Report from Study
  Country: US (occurrence: US)
  Receive Date: 20140306
  Receipt Date: 20140306
  Transmission Date: 20141002
  Serious: Yes (Hospitalization)
  Sender: FDA-Public Use
  Company Number: US-ABBVIE-13P-163-1142696-00

PATIENT
  Age: 33 Year
  Sex: Female

DRUGS (2)
  1. HUMIRA [Suspect]
     Indication: COLITIS ULCERATIVE
  2. HUMIRA [Suspect]
     Dosage: ONE TIME DOSE 160MG

REACTIONS (4)
  - Large intestine perforation [Recovering/Resolving]
  - Malaise [Not Recovered/Not Resolved]
  - Clostridium test positive [Unknown]
  - Unevaluable event [Unknown]
